FAERS Safety Report 12447975 (Version 1)
Quarter: 2016Q2

REPORT INFORMATION
  Report Type: Spontaneous
  Country: ES (occurrence: ES)
  Receive Date: 20160608
  Receipt Date: 20160608
  Transmission Date: 20160815
  Serious: Yes (Other)
  Sender: FDA-Public Use
  Company Number: ES-WATSON-2016-11826

PATIENT
  Age: 11 Year
  Sex: Male

DRUGS (2)
  1. LACOSAMIDE. [Concomitant]
     Active Substance: LACOSAMIDE
     Indication: PARTIAL SEIZURES
     Dosage: 200 MG, BID
     Route: 065
  2. ZONISAMIDE (UNKNOWN) [Suspect]
     Active Substance: ZONISAMIDE
     Indication: PARTIAL SEIZURES
     Dosage: 300 MG, BID
     Route: 065

REACTIONS (1)
  - Cognitive disorder [Recovered/Resolved]
